FAERS Safety Report 5118348-4 (Version None)
Quarter: 2006Q4

REPORT INFORMATION
  Report Type: 
  Country: None (occurrence: None)
  Receive Date: 20061002
  Receipt Date: 20050719
  Transmission Date: 20070319
  Serious: Yes (Death, Hospitalization)
  Sender: FDA-Public Use
  Company Number: ITWYE844519JUL05

PATIENT
  Sex: Female

DRUGS (3)
  1. ENBREL [Suspect]
     Indication: RHEUMATOID ARTHRITIS
     Route: 058
     Dates: start: 20001026
  2. METHOTREXATE [Concomitant]
     Route: 030
     Dates: start: 19990101
  3. URBASON [Concomitant]
     Route: 048
     Dates: start: 19990101

REACTIONS (8)
  - ABSCESS [None]
  - CARDIAC HYPERTROPHY [None]
  - EROSIVE DUODENITIS [None]
  - GASTRITIS EROSIVE [None]
  - INTERVERTEBRAL DISCITIS [None]
  - MENINGITIS [None]
  - SEPTIC SHOCK [None]
  - SUBARACHNOID HAEMORRHAGE [None]
